FAERS Safety Report 25864572 (Version 1)
Quarter: 2025Q3

REPORT INFORMATION
  Report Type: Spontaneous
  Country: CA (occurrence: CA)
  Receive Date: 20250930
  Receipt Date: 20250930
  Transmission Date: 20251021
  Serious: Yes (Other)
  Sender: PFIZER
  Company Number: CA-PFIZER INC-202500192602

PATIENT
  Age: 47 Year
  Sex: Female

DRUGS (2)
  1. IXIFI [Suspect]
     Active Substance: INFLIXIMAB-QBTX
     Indication: Crohn^s disease
     Route: 042
     Dates: start: 20250609
  2. PREDNISONE [Concomitant]
     Active Substance: PREDNISONE
     Dates: start: 20230222

REACTIONS (1)
  - Lipoma [Unknown]
